FAERS Safety Report 9398620 (Version 2)
Quarter: 2013Q3

REPORT INFORMATION
  Report Type: Spontaneous
  Country: US (occurrence: US)
  Receive Date: 20130712
  Receipt Date: 20130719
  Transmission Date: 20140515
  Serious: No
  Sender: FDA-Public Use
  Company Number: US-VERTEX PHARMACEUTICALS INC-2013-007878

PATIENT
  Age: 44 Year
  Sex: Male
  Weight: 107 kg

DRUGS (6)
  1. INCIVEK [Suspect]
     Indication: HEPATITIS C
     Dosage: 750 MG, TID
     Route: 048
     Dates: start: 20130620
  2. RIBASPHERE [Suspect]
     Indication: HEPATITIS C
     Dosage: 600 MG, BID
     Route: 048
     Dates: start: 20130620
  3. PEGASYS [Suspect]
     Indication: HEPATITIS C
     Dosage: 180 ?G, QW
     Route: 058
     Dates: start: 20130620
  4. NORCO [Concomitant]
  5. KEFLEX [Concomitant]
  6. CYMBALTA [Concomitant]

REACTIONS (6)
  - Eye infection staphylococcal [Recovered/Resolved]
  - Eyelid infection [Not Recovered/Not Resolved]
  - Ear infection [Not Recovered/Not Resolved]
  - Oral mucosal blistering [Not Recovered/Not Resolved]
  - Oral pain [Not Recovered/Not Resolved]
  - Rash pruritic [Not Recovered/Not Resolved]
